FAERS Safety Report 9264615 (Version 3)
Quarter: 2014Q1

REPORT INFORMATION
  Report Type: Spontaneous
  Country: BR (occurrence: BR)
  Receive Date: 20130501
  Receipt Date: 20140116
  Transmission Date: 20141002
  Serious: Yes (Death)
  Sender: FDA-Public Use
  Company Number: BR-BIOGENIDEC-2013BI038047

PATIENT
  Sex: Female

DRUGS (2)
  1. AVONEX [Suspect]
     Indication: MULTIPLE SCLEROSIS
     Route: 030
     Dates: start: 20070702, end: 20130322
  2. AVONEX [Suspect]
     Indication: MULTIPLE SCLEROSIS
     Route: 030
     Dates: start: 201303

REACTIONS (11)
  - Decreased immune responsiveness [Unknown]
  - Renal failure [Fatal]
  - Pneumonia bacterial [Fatal]
  - Multiple sclerosis [Unknown]
  - Blood pressure abnormal [Unknown]
  - Immunodeficiency [Unknown]
  - Feeling cold [Unknown]
  - Drug ineffective [Unknown]
  - Multiple sclerosis relapse [Unknown]
  - Pyrexia [Unknown]
  - Malaise [Unknown]
